FAERS Safety Report 8513765-4 (Version None)
Quarter: 2012Q3

REPORT INFORMATION
  Report Type: 
  Country: None (occurrence: None)
  Receive Date: 20120717
  Receipt Date: 20120711
  Transmission Date: 20120928
  Serious: No
  Sender: FDA-Public Use
  Company Number: US-PFIZER INC-2012155612

PATIENT
  Sex: Female
  Weight: 75 kg

DRUGS (4)
  1. LISINOPRIL [Concomitant]
     Dosage: UNK
  2. IRON [Concomitant]
     Indication: ANAEMIA
     Dosage: UNK
     Dates: start: 20120408
  3. SUTENT [Suspect]
     Indication: RENAL CELL CARCINOMA
     Dosage: 50 MG, UNK
     Dates: start: 20120613
  4. SYNTHROID [Concomitant]
     Dosage: UNK

REACTIONS (12)
  - BLISTER [None]
  - HEADACHE [None]
  - MYALGIA [None]
  - SKIN EXFOLIATION [None]
  - DRY SKIN [None]
  - NASAL DISCOMFORT [None]
  - INCISION SITE PAIN [None]
  - BLOOD PRESSURE FLUCTUATION [None]
  - GLOSSODYNIA [None]
  - PALMAR ERYTHEMA [None]
  - MUSCULOSKELETAL PAIN [None]
  - HYPERAESTHESIA [None]
